FAERS Safety Report 12398821 (Version 1)
Quarter: 2016Q2

REPORT INFORMATION
  Report Type: Spontaneous
  Country: JP (occurrence: JP)
  Receive Date: 20160524
  Receipt Date: 20160524
  Transmission Date: 20160815
  Serious: Yes (Death, Hospitalization)
  Sender: FDA-Public Use
  Company Number: JP-PFIZER INC-2016230702

PATIENT
  Age: 67 Year
  Sex: Female
  Weight: 30 kg

DRUGS (4)
  1. ITRACONAZOLE. [Concomitant]
     Active Substance: ITRACONAZOLE
     Indication: PULMONARY MYCOSIS
     Dosage: 2 DF, 1X/DAY
     Route: 048
     Dates: end: 20160425
  2. MYCOBUTIN [Suspect]
     Active Substance: RIFABUTIN
     Indication: ATYPICAL MYCOBACTERIAL INFECTION
     Dosage: 150 MG, 1X/DAY
     Route: 048
     Dates: end: 20160425
  3. LEVOFLOXACIN. [Concomitant]
     Active Substance: LEVOFLOXACIN
     Indication: ATYPICAL MYCOBACTERIAL INFECTION
     Dosage: 1 DF, 1X/DAY
     Route: 048
     Dates: end: 20160425
  4. CLARITHROMYCIN. [Concomitant]
     Active Substance: CLARITHROMYCIN
     Indication: ATYPICAL MYCOBACTERIAL INFECTION
     Dosage: 2 DF, 2X/DAY
     Route: 048
     Dates: end: 20160425

REACTIONS (2)
  - Product difficult to swallow [Unknown]
  - Atypical mycobacterial infection [Fatal]

NARRATIVE: CASE EVENT DATE: 20160415
